FAERS Safety Report 7228102-5 (Version None)
Quarter: 2011Q1

REPORT INFORMATION
  Report Type: 
  Country: None (occurrence: None)
  Receive Date: 20110106
  Receipt Date: 20101220
  Transmission Date: 20110831
  Serious: Yes (Hospitalization)
  Sender: FDA-Public Use
  Company Number: 10-ADE-SU-0068-ACT

PATIENT
  Age: 35 Year
  Sex: Female
  Weight: 43.0917 kg

DRUGS (10)
  1. PROMETHAZINE [Concomitant]
  2. REBIF [Concomitant]
  3. ZANAFLEX [Concomitant]
  4. ZOCOR [Concomitant]
  5. KLONOPIN [Concomitant]
  6. BACLOFEN [Concomitant]
  7. COUMADIN [Concomitant]
  8. H P ACTHAR [Suspect]
     Indication: MULTIPLE SCLEROSIS
     Dosage: 80 IU SC DAILY X 5 DAYS
     Dates: start: 20101210, end: 20101214
  9. PROZAC [Concomitant]
  10. AGRYLIN [Concomitant]

REACTIONS (6)
  - BLOOD POTASSIUM DECREASED [None]
  - GRAND MAL CONVULSION [None]
  - BLOOD SODIUM INCREASED [None]
  - HYPERTENSION [None]
  - ADRENAL DISORDER [None]
  - WHITE BLOOD CELL COUNT DECREASED [None]
